FAERS Safety Report 8057520-0 (Version None)
Quarter: 2012Q1

REPORT INFORMATION
  Report Type: 
  Country: None (occurrence: None)
  Receive Date: 20120119
  Receipt Date: 20120113
  Transmission Date: 20120608
  Serious: Yes (Other)
  Sender: FDA-Public Use
  Company Number: US-ASTRAZENECA-2011SE70935

PATIENT
  Age: 52 Year
  Sex: Female
  Weight: 55.8 kg

DRUGS (3)
  1. SEROQUEL XR [Suspect]
     Route: 048
  2. CELEXA [Concomitant]
     Indication: DEPRESSION
  3. SEROQUEL XR [Suspect]
     Indication: MAJOR DEPRESSION
     Route: 048
     Dates: start: 20100101

REACTIONS (4)
  - SUICIDAL IDEATION [None]
  - SWOLLEN TONGUE [None]
  - DYSKINESIA [None]
  - DRUG DOSE OMISSION [None]
